FAERS Safety Report 5009981-9 (Version None)
Quarter: 2006Q2

REPORT INFORMATION
  Report Type: 
  Country: None (occurrence: None)
  Receive Date: 20060522
  Receipt Date: 20060511
  Transmission Date: 20061013
  Serious: Yes (Other)
  Sender: FDA-Public Use
  Company Number: 2006-BP-05394RO

PATIENT
  Age: 17 Year
  Sex: Male

DRUGS (6)
  1. METHOTREXATE [Suspect]
     Indication: ACUTE LYMPHOCYTIC LEUKAEMIA
     Dosage: 5 G/M2 X 1 DOSE
  2. VINCRISTINE [Suspect]
     Indication: ACUTE LYMPHOCYTIC LEUKAEMIA
     Dosage: 1.5 MG/M2
  3. CYCLOPHOSPHAMIDE [Suspect]
     Indication: ACUTE LYMPHOCYTIC LEUKAEMIA
     Dosage: 200 MG/M2 X 5 DOSES
  4. CYTARABINE [Suspect]
     Indication: ACUTE LYMPHOCYTIC LEUKAEMIA
     Dosage: 2 MG/M2 X 2 DOSES
  5. L-ASPARAGINASE (ASPARAGINASE) [Suspect]
     Indication: ACUTE LYMPHOCYTIC LEUKAEMIA
     Dosage: 25,000 U/M2 X 2 DOSES
  6. IOPAMIDOL [Suspect]
     Indication: SCAN

REACTIONS (10)
  - ACRODERMATITIS [None]
  - BLOOD PHOSPHORUS INCREASED [None]
  - BONE MARROW TRANSPLANT [None]
  - DRUG CLEARANCE DECREASED [None]
  - FEBRILE NEUTROPENIA [None]
  - HEADACHE [None]
  - HYPERTENSION [None]
  - MUCOSAL INFLAMMATION [None]
  - RENAL FAILURE ACUTE [None]
  - THERAPEUTIC RESPONSE DECREASED [None]
